FAERS Safety Report 10042783 (Version 1)
Quarter: 2014Q1

REPORT INFORMATION
  Report Type: Report from Study
  Country: FI (occurrence: FI)
  Receive Date: 20140327
  Receipt Date: 20140327
  Transmission Date: 20141002
  Serious: Yes (Other)
  Sender: FDA-Public Use
  Company Number: FI-BAXTER-2014BAX014613

PATIENT
  Sex: Female

DRUGS (1)
  1. SENDOXAN 1000 MG INJEKTIOKUIVA-AINE, LIUOSTA VARTEN [Suspect]
     Indication: BONE MARROW CONDITIONING REGIMEN
     Route: 065

REACTIONS (1)
  - Maternal exposure before pregnancy [Unknown]
